FAERS Safety Report 20147977 (Version 1)
Quarter: 2021Q4

REPORT INFORMATION
  Report Type: Spontaneous
  Country: IT (occurrence: IT)
  Receive Date: 20211204
  Receipt Date: 20211204
  Transmission Date: 20220303
  Serious: Yes (Hospitalization)
  Sender: FDA-Public Use
  Company Number: IT-ROCHE-2302709

PATIENT
  Age: 53 Year
  Sex: Female
  Weight: 70 kg

DRUGS (18)
  1. DOCETAXEL [Suspect]
     Active Substance: DOCETAXEL
     Indication: Breast cancer
     Dosage: 137.25 MILLIGRAM 3 WEEK
     Route: 042
     Dates: start: 20170130, end: 20170719
  2. DOCETAXEL [Suspect]
     Active Substance: DOCETAXEL
     Indication: HER2 positive breast cancer
     Dosage: 3000  MILLIGRAM
     Route: 048
     Dates: start: 20181016
  3. VINORELBINE [Suspect]
     Active Substance: VINORELBINE TARTRATE
     Indication: HER2 positive breast cancer
     Dosage: 48 MILLIGRAM
     Route: 042
     Dates: start: 20190503, end: 20190730
  4. CAPECITABINE [Suspect]
     Active Substance: CAPECITABINE
     Indication: HER2 positive breast cancer
     Dosage: 3000 MILLIGRAM
     Route: 048
     Dates: start: 20181016
  5. ERIBULIN MESYLATE [Suspect]
     Active Substance: ERIBULIN MESYLATE
     Indication: HER2 positive breast cancer
     Dosage: 2.36 MILLIGRAM
     Route: 042
     Dates: start: 20190903, end: 20191023
  6. FULVESTRANT [Suspect]
     Active Substance: FULVESTRANT
     Indication: HER2 positive breast cancer
     Dosage: 250 MILLIGRAM, OTHER
     Route: 042
     Dates: start: 20191104, end: 20201221
  7. LAPATINIB [Suspect]
     Active Substance: LAPATINIB
     Indication: Breast cancer
     Dosage: 1250 MILLIGRAM, ONCE A DAY
     Route: 048
     Dates: start: 20181016
  8. PALBOCICLIB [Suspect]
     Active Substance: PALBOCICLIB
     Indication: HER2 positive breast cancer
     Dosage: 125 MILLIGRAM
     Route: 048
     Dates: start: 20191104
  9. PERTUZUMAB [Suspect]
     Active Substance: PERTUZUMAB
     Indication: HER2 positive breast cancer
     Dosage: 840 MILLIGRAM 3 WEEKS MOST RECENT DOSE PRIOR TO THE EVENT: 20/FEB/2017
     Route: 042
     Dates: start: 20170130
  10. TRASTUZUMAB [Suspect]
     Active Substance: TRASTUZUMAB
     Indication: HER2 positive breast cancer
     Dosage: 560 MILLIGRAM 3 WEEK MOST RECENT DOSE PRIOR TO THE EVENT: 20/FEB/2017
     Route: 042
     Dates: start: 20170130, end: 20170130
  11. TRASTUZUMAB [Suspect]
     Active Substance: TRASTUZUMAB
     Dosage: 560 MILLIGRAM 3 WEEK MOST RECENT DOSE PRIOR TO THE EVENT: 20/FEB/2017
     Route: 042
     Dates: start: 20170220, end: 20180521
  12. ADO-TRASTUZUMAB EMTANSINE [Suspect]
     Active Substance: ADO-TRASTUZUMAB EMTANSINE
     Indication: HER2 positive breast cancer
     Dosage: 3.6 MICROGRAM/KILOGRAM 3 WEEK
     Route: 042
     Dates: start: 20180613
  13. TYKERB [Suspect]
     Active Substance: LAPATINIB DITOSYLATE
     Indication: Breast cancer
     Dosage: 1250 MILLIGRAM, ONCE A DAY
     Route: 048
     Dates: start: 20181016
  14. LEVOTHYROXINE SODIUM [Concomitant]
     Active Substance: LEVOTHYROXINE SODIUM
     Indication: Product used for unknown indication
     Dosage: UNK
     Route: 065
     Dates: start: 20161219
  15. PANTOPRAZOLE [Concomitant]
     Active Substance: PANTOPRAZOLE
     Indication: Product used for unknown indication
     Dosage: UNK
     Route: 065
     Dates: start: 20181121
  16. CITALOPRAM [Concomitant]
     Active Substance: CITALOPRAM HYDROBROMIDE
     Indication: Product used for unknown indication
     Dosage: UNK
     Route: 065
  17. LOSARTAN [Concomitant]
     Active Substance: LOSARTAN
     Indication: Product used for unknown indication
     Dosage: UNK
     Route: 065
  18. ZOLEDRONIC ACID [Concomitant]
     Active Substance: ZOLEDRONIC ACID
     Indication: Product used for unknown indication
     Dosage: ONGOING = NOT CHECKED
     Route: 065
     Dates: start: 20191106, end: 20200622

REACTIONS (4)
  - Blood creatinine increased [Recovered/Resolved]
  - Blood bilirubin increased [Recovered/Resolved]
  - Fatigue [Recovered/Resolved]
  - Rash [Recovered/Resolved]

NARRATIVE: CASE EVENT DATE: 20190109
